FAERS Safety Report 4582971-6 (Version None)
Quarter: 2005Q1

REPORT INFORMATION
  Report Type: 
  Country: None (occurrence: None)
  Receive Date: 20050127
  Receipt Date: 20040920
  Transmission Date: 20050727
  Serious: No
  Sender: FDA-Public Use
  Company Number: USA040978726

PATIENT
  Age: 9 Year
  Sex: Female
  Weight: 41 kg

DRUGS (2)
  1. STRATTERA [Suspect]
     Indication: DISTURBANCE IN ATTENTION
     Dosage: 40 MG DAY
     Dates: start: 20030101
  2. LORABID [Concomitant]

REACTIONS (6)
  - DISTURBANCE IN ATTENTION [None]
  - DRUG EFFECT DECREASED [None]
  - INSOMNIA [None]
  - NIGHTMARE [None]
  - SLEEP DISORDER [None]
  - STOMACH DISCOMFORT [None]
